FAERS Safety Report 4447910-7 (Version None)
Quarter: 2004Q3

REPORT INFORMATION
  Report Type: 
  Country: None (occurrence: None)
  Receive Date: 20040909
  Receipt Date: 20040909
  Transmission Date: 20050211
  Serious: Yes (Hospitalization)
  Sender: FDA-Public Use
  Company Number: None

PATIENT
  Sex: Male
  Weight: 87.5 kg

DRUGS (6)
  1. IRESSA [Suspect]
     Indication: OESOPHAGEAL CARCINOMA
     Dosage: 250 MG DAILY PO
     Route: 048
     Dates: start: 20040827
  2. NEXIUM [Suspect]
     Indication: GASTROOESOPHAGEAL REFLUX DISEASE
     Dosage: 40 MG DAILY PO
     Route: 048
  3. FERROUS SULFATE TAB [Suspect]
     Indication: IRON DEFICIENCY
     Dosage: 325 MG TID PO
     Route: 048
  4. FLOMAX [Suspect]
     Indication: BENIGN PROSTATIC HYPERPLASIA
     Dosage: 0.4 MG BID PO
     Route: 048
  5. DOXEPIN HCL [Suspect]
     Indication: DEPRESSION
     Dosage: 10 MG QHS PO
     Route: 048
  6. BEXTRA [Suspect]
     Indication: PAIN
     Dosage: 10 MG PRN PO
     Route: 048

REACTIONS (6)
  - ABDOMINAL PAIN UPPER [None]
  - CARCINOMA [None]
  - GASTRITIS EROSIVE [None]
  - GASTROINTESTINAL ULCER [None]
  - HAEMATEMESIS [None]
  - NAUSEA [None]
